FAERS Safety Report 10201132 (Version 1)
Quarter: 2014Q2

REPORT INFORMATION
  Report Type: Spontaneous
  Country: US (occurrence: US)
  Receive Date: 20140528
  Receipt Date: 20140528
  Transmission Date: 20141212
  Serious: Yes (Disabling)
  Sender: FDA-Public Use
  Company Number: US-PFIZER INC-2014143496

PATIENT
  Age: 52 Year
  Sex: Male
  Weight: 123.36 kg

DRUGS (11)
  1. LYRICA [Suspect]
     Indication: NEUROPATHY PERIPHERAL
     Dosage: 150 MG, UNK (THREE TO FOUR TIMES A DAY)
  2. ATORVASTATIN CALCIUM [Concomitant]
     Indication: BLOOD CHOLESTEROL INCREASED
     Dosage: UNK
  3. QUINAPRIL [Concomitant]
     Indication: HYPERTENSION
     Dosage: UNK
  4. CALCIUM [Concomitant]
     Dosage: UNK, DAILY
  5. FISH OIL [Concomitant]
     Dosage: UNK, DAILY
  6. CLONAZEPAM [Concomitant]
     Indication: RESTLESS LEGS SYNDROME
     Dosage: UNK
  7. LIDODERM [Concomitant]
     Dosage: UNK
  8. HYDROCODONE [Concomitant]
     Indication: PAIN
     Dosage: UNK
  9. DICLOFENAC [Concomitant]
     Indication: SWELLING
     Dosage: UNK, DAILY
  10. ANDROGEL [Concomitant]
     Dosage: UNK
  11. MULTIVITAMINS [Concomitant]

REACTIONS (1)
  - Drug ineffective [Unknown]
